FAERS Safety Report 16301555 (Version 3)
Quarter: 2019Q3

REPORT INFORMATION
  Report Type: Spontaneous
  Country: PL (occurrence: PL)
  Receive Date: 20190511
  Receipt Date: 20190725
  Transmission Date: 20191004
  Serious: Yes (Death, Other)
  Sender: FDA-Public Use
  Company Number: PL-ROCHE-2315181

PATIENT
  Age: 78 Year
  Sex: Male
  Weight: 83 kg

DRUGS (4)
  1. MUCOSOLVAN [Concomitant]
     Active Substance: AMBROXOL HYDROCHLORIDE
  2. ESBRIET [Suspect]
     Active Substance: PIRFENIDONE
     Indication: IDIOPATHIC PULMONARY FIBROSIS
     Route: 048
     Dates: start: 20180126
  3. ESBRIET [Suspect]
     Active Substance: PIRFENIDONE
     Route: 048
     Dates: end: 20190427
  4. ESBRIET [Suspect]
     Active Substance: PIRFENIDONE
     Dosage: 534 UNIT NOT REPORTED
     Route: 048
     Dates: start: 20180126, end: 20190427

REACTIONS (5)
  - Respiratory failure [Unknown]
  - Asthenia [Unknown]
  - Death [Fatal]
  - Pneumothorax [Unknown]
  - Cough [Unknown]

NARRATIVE: CASE EVENT DATE: 201812
